FAERS Safety Report 5826541-8 (Version None)
Quarter: 2008Q3

REPORT INFORMATION
  Report Type: 
  Country: None (occurrence: None)
  Receive Date: 20080729
  Receipt Date: 20080721
  Transmission Date: 20090109
  Serious: Yes (Hospitalization)
  Sender: FDA-Public Use
  Company Number: US-ELI_LILLY_AND_COMPANY-US200806001823

PATIENT
  Sex: Female

DRUGS (12)
  1. HUMATROPE [Suspect]
     Indication: HYPOPITUITARISM
     Dosage: 0.3 MG, DAILY (1/D)
  2. TOPAMAX [Concomitant]
     Indication: MIGRAINE
     Dosage: 75 MG, DAILY (1/D)
  3. NEURONTIN [Concomitant]
     Dosage: 300 MG, 3/D
  4. EFFEXOR XR [Concomitant]
     Dosage: 75 MG, DAILY (1/D)
  5. METFORMIN HCL [Concomitant]
     Dosage: 1000 MG, 2/D
  6. ADDERALL 10 [Concomitant]
     Dosage: 10 MG, DAILY (1/D)
  7. PROTONIX [Concomitant]
     Dosage: 40 MG, DAILY (1/D)
  8. SYNTHROID [Concomitant]
     Dosage: 112 MG, 6/W
  9. SYNTHROID [Concomitant]
     Dosage: 100 MG, WEEKLY (1/W)
  10. NIACIN [Concomitant]
     Dosage: 100 MG, DAILY (1/D)
  11. VITAMIN D [Concomitant]
     Dosage: 11.25 UNK, WEEKLY (1/W)
  12. ASPIRIN [Concomitant]
     Dosage: UNK, DAILY (1/D)

REACTIONS (3)
  - FEELING ABNORMAL [None]
  - MIGRAINE [None]
  - STRESS [None]
